FAERS Safety Report 5280405-X (Version None)
Quarter: 2007Q1

REPORT INFORMATION
  Report Type: 
  Country: None (occurrence: None)
  Receive Date: 20070329
  Receipt Date: 20070322
  Transmission Date: 20070707
  Serious: Yes (Other)
  Sender: FDA-Public Use
  Company Number: HQWYE574123MAR07

PATIENT
  Sex: Female
  Weight: 68.1 kg

DRUGS (1)
  1. ADVIL [Suspect]
     Indication: MYALGIA
     Dosage: 2 LIQUI-GELS ONE TIME
     Route: 048
     Dates: start: 20070321, end: 20070321

REACTIONS (4)
  - DYSPNOEA [None]
  - EYE PRURITUS [None]
  - EYE SWELLING [None]
  - HYPERSENSITIVITY [None]
